FAERS Safety Report 22192829 (Version 6)
Quarter: 2023Q4

REPORT INFORMATION
  Report Type: Report from Study
  Country: US (occurrence: US)
  Receive Date: 20230410
  Receipt Date: 20231227
  Transmission Date: 20240110
  Serious: Yes (Hospitalization)
  Sender: FDA-Public Use
  Company Number: US-XERIS PHARMACEUTICALS-2022XER00035

PATIENT
  Sex: Female
  Weight: 86.168 kg

DRUGS (16)
  1. KEVEYIS [Suspect]
     Active Substance: DICHLORPHENAMIDE
     Indication: Paralysis
     Dosage: ONE TABLET (50 MG), 3X/DAY
     Route: 048
     Dates: start: 2017
  2. KEVEYIS [Suspect]
     Active Substance: DICHLORPHENAMIDE
     Indication: Hyperkalaemia
     Dosage: ONE TABLET (50 MG), 3X/DAY
     Route: 048
  3. KEVEYIS [Suspect]
     Active Substance: DICHLORPHENAMIDE
     Dosage: ONE TABLET (50 MG), 3X/DAY
     Route: 048
  4. KEVEYIS [Suspect]
     Active Substance: DICHLORPHENAMIDE
     Dosage: ONE TABLET (50 MG), 3X/DAY
     Route: 048
  5. KEVEYIS [Suspect]
     Active Substance: DICHLORPHENAMIDE
     Dosage: ONE TABLET (50 MG), 3X/DAY
     Route: 048
  6. KEVEYIS [Suspect]
     Active Substance: DICHLORPHENAMIDE
     Dosage: ONE TABLET (50 MG), 3X/DAY
     Route: 048
  7. KEVEYIS [Suspect]
     Active Substance: DICHLORPHENAMIDE
     Dosage: ONE TABLET (50 MG), 3X/DAY
     Route: 048
  8. PFIZER-BIONTECH COVID-19 VACCINE [Suspect]
     Active Substance: TOZINAMERAN
  9. CANNABIS SATIVA SUBSP. INDICA TOP [Suspect]
     Active Substance: CANNABIS SATIVA SUBSP. INDICA TOP
  10. UNSPECIFIED DAILY VITAMINS [Concomitant]
  11. VITAMIN D [Concomitant]
     Active Substance: VITAMIN D NOS
  12. GARLIC [Concomitant]
     Active Substance: GARLIC
  13. FISH OIL [Concomitant]
     Active Substance: FISH OIL
  14. VITAMIN C [Concomitant]
     Active Substance: ASCORBIC ACID
  15. COLLAGEN [Concomitant]
     Active Substance: COLLAGEN
  16. METOPROLOL [Concomitant]
     Active Substance: METOPROLOL
     Dosage: 25 MG, 1X/DAY AT 8AM IN THE MORNING

REACTIONS (30)
  - Hospitalisation [Recovered/Resolved]
  - Laboratory test abnormal [Not Recovered/Not Resolved]
  - Ulcer [Recovered/Resolved]
  - Sinus disorder [Recovered/Resolved]
  - Peripheral coldness [Recovered/Resolved]
  - COVID-19 [Recovered/Resolved]
  - Hypokinesia [Recovered/Resolved]
  - Asthenia [Not Recovered/Not Resolved]
  - Muscular weakness [Recovered/Resolved]
  - Pain [Not Recovered/Not Resolved]
  - Ear infection [Unknown]
  - Pharyngitis [Unknown]
  - Pneumonia [Recovered/Resolved]
  - Muscle strain [Unknown]
  - Stress [Unknown]
  - Hypersensitivity [Recovered/Resolved]
  - Insomnia [Not Recovered/Not Resolved]
  - Illness [Unknown]
  - Myotonia [Not Recovered/Not Resolved]
  - Myalgia [Unknown]
  - Dysphagia [Not Recovered/Not Resolved]
  - Posture abnormal [Not Recovered/Not Resolved]
  - Muscle atrophy [Not Recovered/Not Resolved]
  - Gait disturbance [Not Recovered/Not Resolved]
  - Speech disorder [Not Recovered/Not Resolved]
  - Paralysis [Not Recovered/Not Resolved]
  - Unevaluable event [Unknown]
  - Hypokalaemia [Recovered/Resolved]
  - Fatigue [Unknown]
  - Dyspnoea [Not Recovered/Not Resolved]

NARRATIVE: CASE EVENT DATE: 20220101
